FAERS Safety Report 25869933 (Version 1)
Quarter: 2025Q4

REPORT INFORMATION
  Report Type: Spontaneous
  Country: US (occurrence: None)
  Receive Date: 20251001
  Receipt Date: 20251001
  Transmission Date: 20260117
  Serious: Yes (Other)
  Sender: FDA-CTU
  Company Number: None

PATIENT

DRUGS (4)
  1. BENADRYL [Suspect]
     Active Substance: DIPHENHYDRAMINE HYDROCHLORIDE
  2. PEPCID [Suspect]
     Active Substance: FAMOTIDINE
  3. OMEPRAZOLE [Suspect]
     Active Substance: OMEPRAZOLE
  4. PEPTO-BISMOL [Suspect]
     Active Substance: BISMUTH SUBSALICYLATE

REACTIONS (3)
  - Fluid retention [None]
  - Hypertension [None]
  - Constipation [None]

NARRATIVE: CASE EVENT DATE: 20230924
